FAERS Safety Report 8432961-8 (Version None)
Quarter: 2012Q2

REPORT INFORMATION
  Report Type: 
  Country: None (occurrence: None)
  Receive Date: 20120613
  Receipt Date: 20120604
  Transmission Date: 20120825
  Serious: Yes (Death, Hospitalization)
  Sender: FDA-Public Use
  Company Number: US-ROCHE-1074370

PATIENT
  Sex: Female

DRUGS (8)
  1. CLARITIN [Concomitant]
     Indication: HYPERSENSITIVITY
     Route: 048
  2. KEPPRA [Concomitant]
     Indication: CONVULSION
     Route: 048
  3. ASPIRIN [Concomitant]
     Route: 048
  4. XELODA [Suspect]
     Indication: PRODUCT USED FOR UNKNOWN INDICATION
     Route: 048
     Dates: start: 20120209, end: 20120224
  5. LAPATINIB [Suspect]
     Indication: PRODUCT USED FOR UNKNOWN INDICATION
     Route: 048
  6. PHENERGAN [Concomitant]
     Indication: NAUSEA
     Route: 030
  7. ZOFRAN [Concomitant]
     Indication: NAUSEA
     Route: 048
  8. PRAVASTATIN [Concomitant]
     Route: 048

REACTIONS (4)
  - DISEASE PROGRESSION [None]
  - METASTASES TO LIVER [None]
  - GASTROENTERITIS [None]
  - BREAST CANCER STAGE IV [None]
